FAERS Safety Report 16171890 (Version 1)
Quarter: 2019Q2

REPORT INFORMATION
  Report Type: Spontaneous
  Country: US (occurrence: US)
  Receive Date: 20190408
  Receipt Date: 20190408
  Transmission Date: 20190711
  Serious: Yes (Other)
  Sender: FDA-Public Use
  Company Number: US-ASTRAZENECA-2019SE53545

PATIENT
  Age: 72 Year
  Sex: Male

DRUGS (1)
  1. DALIRESP [Suspect]
     Active Substance: ROFLUMILAST
     Indication: CHRONIC OBSTRUCTIVE PULMONARY DISEASE
     Dosage: EVERY DAY, 250 UG DOSE FOR 1 MONTH, AND THEN THE 500 UG DOSE FOR 1 WEEK
     Route: 048

REACTIONS (2)
  - Abdominal pain [Unknown]
  - Suicidal behaviour [Unknown]
